FAERS Safety Report 7138623-1 (Version None)
Quarter: 2010Q4

REPORT INFORMATION
  Report Type: 
  Country: None (occurrence: None)
  Receive Date: 20101122
  Receipt Date: 20101112
  Transmission Date: 20110411
  Serious: Yes (Other)
  Sender: FDA-Public Use
  Company Number: PI-05138

PATIENT
  Sex: Male

DRUGS (1)
  1. CHLORAPREP [Suspect]
     Indication: PREOPERATIVE CARE
     Dosage: 1.5ML, ONCE, TOPICAL
     Route: 061
     Dates: start: 20101108

REACTIONS (1)
  - LACERATION [None]
